FAERS Safety Report 14564326 (Version 2)
Quarter: 2018Q1

REPORT INFORMATION
  Report Type: Spontaneous
  Country: US (occurrence: US)
  Receive Date: 20180222
  Receipt Date: 20180326
  Transmission Date: 20180509
  Serious: Yes (Death, Hospitalization)
  Sender: FDA-Public Use
  Company Number: US-ACTELION-A-NJ2018-167791

PATIENT
  Age: 82 Year
  Sex: Female

DRUGS (2)
  1. OPSUMIT [Suspect]
     Active Substance: MACITENTAN
     Indication: PULMONARY ARTERIAL HYPERTENSION
     Dosage: 10 MG, QD
     Route: 048
     Dates: start: 20140418
  2. ORENITRAM [Concomitant]
     Active Substance: TREPROSTINIL
     Dosage: 0.25 MG, Q12HRS
     Dates: start: 20160628, end: 20180208

REACTIONS (1)
  - Death [Fatal]

NARRATIVE: CASE EVENT DATE: 20180208
